FAERS Safety Report 17946305 (Version 1)
Quarter: 2020Q2

REPORT INFORMATION
  Report Type: Spontaneous
  Country: CA (occurrence: CA)
  Receive Date: 20200626
  Receipt Date: 20200626
  Transmission Date: 20200714
  Serious: Yes (Death)
  Sender: FDA-Public Use
  Company Number: CA-ORION CORPORATION ORION PHARMA-20_00009536

PATIENT

DRUGS (8)
  1. DOXORUBICIN HCL [Suspect]
     Active Substance: DOXORUBICIN HYDROCHLORIDE
     Indication: BURKITT^S LYMPHOMA
     Route: 065
  2. CYTARABINE. [Suspect]
     Active Substance: CYTARABINE
     Indication: BURKITT^S LYMPHOMA
     Route: 065
  3. VINCRISTINE SULFATE. [Suspect]
     Active Substance: VINCRISTINE SULFATE
     Indication: BURKITT^S LYMPHOMA
     Route: 065
  4. CYCLOPHOSPHAMIDE. [Suspect]
     Active Substance: CYCLOPHOSPHAMIDE
     Indication: BURKITT^S LYMPHOMA
     Route: 065
  5. IFOSFAMIDE. [Suspect]
     Active Substance: IFOSFAMIDE
     Indication: BURKITT^S LYMPHOMA
     Route: 065
  6. METHOTREXATE (TRADE NAME UNKNOWN) [Suspect]
     Active Substance: METHOTREXATE
     Indication: BURKITT^S LYMPHOMA
     Route: 065
  7. ETOPOSIDE. [Suspect]
     Active Substance: ETOPOSIDE
     Indication: BURKITT^S LYMPHOMA
     Route: 065
  8. RITUXIMAB. [Suspect]
     Active Substance: RITUXIMAB
     Indication: BURKITT^S LYMPHOMA
     Route: 065

REACTIONS (1)
  - Death [Fatal]
